FAERS Safety Report 8295128-2 (Version None)
Quarter: 2012Q2

REPORT INFORMATION
  Report Type: 
  Country: None (occurrence: None)
  Receive Date: 20120416
  Receipt Date: 20120402
  Transmission Date: 20120825
  Serious: Yes (Other)
  Sender: FDA-Public Use
  Company Number: AUR-APL-2012-01728

PATIENT
  Sex: Female

DRUGS (6)
  1. LEXAPRO [Concomitant]
  2. ASCORBIC ACID [Concomitant]
  3. NORVASC [Suspect]
     Indication: HYPERTENSION
  4. DETROL LA [Suspect]
     Indication: PRODUCT USED FOR UNKNOWN INDICATION
  5. HYDROCHLOROTHIAZIDE [Suspect]
     Indication: HYPERTENSION
     Dosage: (25 MG, 1D),
  6. VITAMIN E [Concomitant]

REACTIONS (3)
  - CELLULITIS [None]
  - RASH MACULAR [None]
  - CONDITION AGGRAVATED [None]
